FAERS Safety Report 10185571 (Version 1)
Quarter: 2014Q2

REPORT INFORMATION
  Report Type: Spontaneous
  Country: FR (occurrence: FR)
  Receive Date: 20140521
  Receipt Date: 20140521
  Transmission Date: 20141212
  Serious: Yes (Other)
  Sender: FDA-Public Use
  Company Number: FR-ASTRAZENECA-2014SE33140

PATIENT
  Age: 23823 Day
  Sex: Female
  Weight: 56 kg

DRUGS (9)
  1. CRESTOR [Suspect]
     Route: 048
  2. METFORMINE [Suspect]
     Route: 048
  3. ALFUZOSINE [Suspect]
     Indication: BLADDER CATHETERISATION
     Route: 048
     Dates: start: 20140106
  4. IMOVANE [Suspect]
     Route: 048
  5. ATARAX [Suspect]
     Route: 048
  6. SEROPLEX [Suspect]
     Route: 048
  7. KARDEGIC [Suspect]
     Route: 048
  8. LEVOTHYROX [Suspect]
     Route: 048
  9. APROVEL [Suspect]
     Route: 048

REACTIONS (4)
  - Dyspepsia [Recovering/Resolving]
  - Nasal congestion [Recovering/Resolving]
  - Nausea [Recovering/Resolving]
  - Fatigue [Recovering/Resolving]
